FAERS Safety Report 6291647-9 (Version None)
Quarter: 2009Q3

REPORT INFORMATION
  Report Type: 
  Country: None (occurrence: None)
  Receive Date: 20090730
  Receipt Date: 20090720
  Transmission Date: 20100115
  Serious: Yes (Hospitalization)
  Sender: FDA-Public Use
  Company Number: US-ELI_LILLY_AND_COMPANY-US200907004140

PATIENT
  Sex: Female

DRUGS (7)
  1. FORTEO [Suspect]
     Dosage: UNK, UNK
     Dates: start: 20090301, end: 20090101
  2. FORTEO [Suspect]
     Dates: start: 20090701
  3. HYDROCODONE [Concomitant]
     Indication: ARTHRITIS
  4. CELEBREX [Concomitant]
     Indication: JOINT SWELLING
  5. NADOLOL [Concomitant]
     Indication: HYPERTENSION
  6. CRESTOR [Concomitant]
     Indication: HYPERTENSION
  7. GLUCOSAMINE [Concomitant]

REACTIONS (2)
  - ARTHRALGIA [None]
  - KNEE ARTHROPLASTY [None]
